FAERS Safety Report 23494531 (Version 1)
Quarter: 2024Q1

REPORT INFORMATION
  Report Type: Spontaneous
  Country: US (occurrence: US)
  Receive Date: 20240207
  Receipt Date: 20240207
  Transmission Date: 20240410
  Serious: Yes (Hospitalization)
  Sender: FDA-Public Use
  Company Number: US-VERTEX PHARMACEUTICALS-2024-001906

PATIENT
  Sex: Female

DRUGS (1)
  1. TRIKAFTA [Suspect]
     Active Substance: ELEXACAFTOR\IVACAFTOR\TEZACAFTOR
     Indication: Cystic fibrosis
     Dosage: UNK FREQ
     Route: 048
     Dates: start: 2020

REACTIONS (5)
  - Hospitalisation [Unknown]
  - Mental disorder [Not Recovered/Not Resolved]
  - Illness [Recovered/Resolved]
  - Pain [Not Recovered/Not Resolved]
  - Attention deficit hyperactivity disorder [Unknown]
